FAERS Safety Report 6687125-5 (Version None)
Quarter: 2010Q2

REPORT INFORMATION
  Report Type: 
  Country: None (occurrence: None)
  Receive Date: 20100419
  Receipt Date: 20100414
  Transmission Date: 20101027
  Serious: Yes (Death)
  Sender: FDA-Public Use
  Company Number: CN-ROCHE-693672

PATIENT
  Sex: Female
  Weight: 44 kg

DRUGS (3)
  1. TOCILIZUMAB [Suspect]
     Indication: RHEUMATOID ARTHRITIS
     Dosage: LAST DOSE : 24 FEBRUARY 2010, ROUTE: INTRAVENOUS INFUSION (PER PROTOCOL), FORM: INJECTION.
     Route: 042
     Dates: start: 20070228, end: 20100324
  2. TOCILIZUMAB [Suspect]
     Dosage: THE PATIENT WAS PREVIOUSLY ENROLLED IN WA17824 AND WAS RECIEVING TOCILIZUMAB.
     Route: 042
  3. METOPROLOL TARTRATE [Suspect]
     Indication: HYPERTENSION
     Route: 065
     Dates: start: 20061021

REACTIONS (1)
  - DEATH [None]
